FAERS Safety Report 23549180 (Version 2)
Quarter: 2024Q3

REPORT INFORMATION
  Report Type: Spontaneous
  Country: US (occurrence: US)
  Receive Date: 20240221
  Receipt Date: 20240920
  Transmission Date: 20241017
  Serious: No
  Sender: PFIZER
  Company Number: US-PFIZER INC-202400045462

PATIENT
  Age: 44 Year
  Sex: Female

DRUGS (9)
  1. XELJANZ XR [Suspect]
     Active Substance: TOFACITINIB CITRATE
     Dosage: 11 MG, 1X/DAY
     Route: 048
     Dates: start: 202309, end: 202310
  2. XELJANZ XR [Suspect]
     Active Substance: TOFACITINIB CITRATE
     Dosage: 11 MG, 1X/DAY
     Route: 048
     Dates: start: 202401
  3. VITAMIN B12 [Concomitant]
     Active Substance: CYANOCOBALAMIN
  4. IBUPROFEN [Concomitant]
     Active Substance: IBUPROFEN
  5. LEVOTHYROXINE SODIUM [Concomitant]
     Active Substance: LEVOTHYROXINE SODIUM
  6. VITAMIN D3 [Concomitant]
     Active Substance: CHOLECALCIFEROL
  7. TYLENOL [Concomitant]
     Active Substance: ACETAMINOPHEN
  8. LIOTHYRONINE SODIUM [Concomitant]
     Active Substance: LIOTHYRONINE SODIUM
  9. PROBIOTIC 10 BILLION CELL CAPSULE [Concomitant]

REACTIONS (4)
  - White blood cell count decreased [Recovered/Resolved]
  - Drug ineffective [Unknown]
  - Infection [Not Recovered/Not Resolved]
  - Product dose omission issue [Unknown]

NARRATIVE: CASE EVENT DATE: 20231001
